FAERS Safety Report 20768473 (Version 1)
Quarter: 2022Q2

REPORT INFORMATION
  Report Type: Report from Study
  Country: TW (occurrence: None)
  Receive Date: 20220429
  Receipt Date: 20220429
  Transmission Date: 20220721
  Serious: Yes (Hospitalization)
  Sender: FDA-Public Use
  Company Number: 2022A163435

PATIENT
  Age: 49 Year
  Sex: Male

DRUGS (1)
  1. IMFINZI [Suspect]
     Active Substance: DURVALUMAB
     Dosage: 720.0MG UNKNOWN
     Route: 042
     Dates: start: 20220126

REACTIONS (3)
  - Liver function test increased [Unknown]
  - Lethargy [Unknown]
  - Pyrexia [Unknown]
